FAERS Safety Report 19575484 (Version 1)
Quarter: 2021Q3

REPORT INFORMATION
  Report Type: Spontaneous
  Country: SE (occurrence: SE)
  Receive Date: 20210719
  Receipt Date: 20210719
  Transmission Date: 20211014
  Serious: Yes (Other)
  Sender: FDA-Public Use
  Company Number: ALC2021SE004296

PATIENT

DRUGS (2)
  1. OCULAC 50 MG/ML AUGNDROPAR, LAUSN [Suspect]
     Active Substance: POVIDONE
     Indication: EYE LASER SURGERY
     Dosage: 50 MG/ML
     Route: 047
     Dates: start: 20210328, end: 20210412
  2. ARTELAC [HYPROMELLOSE] [Concomitant]
     Active Substance: HYPROMELLOSES
     Indication: PRODUCT USED FOR UNKNOWN INDICATION
     Dosage: EVERY HOUR
     Route: 047
     Dates: start: 20210306

REACTIONS (4)
  - Eye irritation [Not Recovered/Not Resolved]
  - Nausea [Not Recovered/Not Resolved]
  - Headache [Not Recovered/Not Resolved]
  - Visual impairment [Not Recovered/Not Resolved]

NARRATIVE: CASE EVENT DATE: 20210402
